FAERS Safety Report 9025449 (Version 3)
Quarter: 2013Q1

REPORT INFORMATION
  Report Type: Spontaneous
  Country: JP (occurrence: JP)
  Receive Date: 20130122
  Receipt Date: 20130205
  Transmission Date: 20140127
  Serious: Yes (Death)
  Sender: FDA-Public Use
  Company Number: JP-B.I. PHARMACEUTICALS,INC./RIDGEFIELD-2013-BI-00961NB

PATIENT
  Age: 92 Year
  Sex: Female
  Weight: 45 kg

DRUGS (8)
  1. PRADAXA [Suspect]
     Indication: THROMBOSIS
     Dosage: 300 MG
     Route: 048
  2. PERDIPINE LA [Concomitant]
     Indication: HYPERTENSION
     Dosage: 80 MG
     Route: 048
  3. CELECOX [Concomitant]
     Dosage: 200 MG
     Route: 048
  4. VASOLAN [Concomitant]
     Indication: ATRIAL FIBRILLATION
     Dosage: 80 MG
     Route: 048
  5. SIMVASTATIN [Concomitant]
     Indication: ATRIAL FIBRILLATION
     Dosage: 5 MG
     Route: 048
  6. FASTIC [Concomitant]
     Indication: ATRIAL FIBRILLATION
     Dosage: 90 MG
     Route: 048
  7. GASTER D [Concomitant]
     Indication: ATRIAL FIBRILLATION
     Dosage: 10 MG
     Route: 048
  8. DIART [Concomitant]
     Indication: ATRIAL FIBRILLATION
     Dosage: 60 MG
     Route: 048

REACTIONS (5)
  - Shock haemorrhagic [Fatal]
  - Upper gastrointestinal haemorrhage [Fatal]
  - Hypothermia [Unknown]
  - Haematemesis [Unknown]
  - Nausea [Unknown]
